FAERS Safety Report 12668004 (Version 1)
Quarter: 2016Q3

REPORT INFORMATION
  Report Type: Other
  Country: US (occurrence: US)
  Receive Date: 20160819
  Receipt Date: 20160819
  Transmission Date: 20161109
  Serious: Yes (Life-Threatening, Hospitalization)
  Sender: FDA-Public Use
  Company Number: US-CONCORDIA PHARMACEUTICALS INC.-CO-PL-US-2016-433

PATIENT
  Age: 50 Year
  Sex: Female

DRUGS (1)
  1. HYDROXYCHLOROQUINE SULFATE. [Suspect]
     Active Substance: HYDROXYCHLOROQUINE SULFATE
     Indication: SYSTEMIC LUPUS ERYTHEMATOSUS
     Route: 048

REACTIONS (8)
  - Chest discomfort [Unknown]
  - Loss of consciousness [Unknown]
  - Fall [Unknown]
  - Palpitations [Unknown]
  - Electrocardiogram QT prolonged [Recovering/Resolving]
  - Head injury [Unknown]
  - Condition aggravated [Unknown]
  - Syncope [Recovering/Resolving]
